FAERS Safety Report 5701464-3 (Version None)
Quarter: 2008Q2

REPORT INFORMATION
  Report Type: 
  Country: None (occurrence: None)
  Receive Date: 20080410
  Receipt Date: 20080401
  Transmission Date: 20081010
  Serious: Yes (Death, Hospitalization)
  Sender: FDA-Public Use
  Company Number: US-GILEAD-2008-0015613

PATIENT
  Sex: Male

DRUGS (10)
  1. LETAIRIS [Suspect]
     Indication: PULMONARY HYPERTENSION
     Route: 048
     Dates: start: 20070809
  2. OXYGEN [Concomitant]
     Route: 055
  3. LOSARTAN POTASSIUM [Concomitant]
     Route: 048
  4. LASIX [Concomitant]
     Route: 048
  5. DIGOXIN [Concomitant]
     Route: 048
  6. PRILOSEC [Concomitant]
     Route: 048
  7. DARVOCET-N [Concomitant]
  8. LEVOTHYROXINE SODIUM [Concomitant]
     Route: 048
  9. VITAMIN CAP [Concomitant]
  10. ARANESP [Concomitant]

REACTIONS (4)
  - CARDIAC FAILURE CONGESTIVE [None]
  - CORONARY ARTERY DISEASE [None]
  - PNEUMOTHORAX [None]
  - RENAL FAILURE ACUTE [None]
